FAERS Safety Report 22261905 (Version 2)
Quarter: 2023Q2

REPORT INFORMATION
  Report Type: Report from Study
  Country: CA (occurrence: CA)
  Receive Date: 20230428
  Receipt Date: 20230517
  Transmission Date: 20230721
  Serious: Yes (Other)
  Sender: FDA-Public Use
  Company Number: CA-JNJFOC-20230230655

PATIENT
  Age: 45 Year
  Sex: Female

DRUGS (2)
  1. STELARA [Suspect]
     Active Substance: USTEKINUMAB
     Indication: Crohn^s disease
     Dosage: EXPIRY DATE: 01-SEP-2025, SWITCHING TO AMGEVITA
     Route: 058
     Dates: start: 20201218, end: 2023
  2. STELARA [Suspect]
     Active Substance: USTEKINUMAB

REACTIONS (10)
  - Osteoarthritis [Not Recovered/Not Resolved]
  - Ankylosing spondylitis [Recovering/Resolving]
  - Influenza like illness [Recovering/Resolving]
  - Bronchitis [Recovered/Resolved]
  - Migraine [Not Recovered/Not Resolved]
  - Vomiting [Recovering/Resolving]
  - Bedridden [Unknown]
  - Meniscus injury [Unknown]
  - Synovial cyst [Unknown]
  - Malaise [Unknown]

NARRATIVE: CASE EVENT DATE: 20230101
